FAERS Safety Report 4693804-1 (Version None)
Quarter: 2005Q2

REPORT INFORMATION
  Report Type: 
  Country: None (occurrence: None)
  Receive Date: 20050616
  Receipt Date: 20050607
  Transmission Date: 20051028
  Serious: Yes (Other)
  Sender: FDA-Public Use
  Company Number: 2005-06-0491

PATIENT
  Age: 60 Year
  Sex: Male

DRUGS (2)
  1. INTRON A [Suspect]
     Indication: CHRONIC MYELOID LEUKAEMIA
     Dosage: 7 MU QD
  2. HYDROXYUREA [Concomitant]

REACTIONS (3)
  - GANGRENE [None]
  - PAIN [None]
  - TOE AMPUTATION [None]
